FAERS Safety Report 25467707 (Version 2)
Quarter: 2025Q3

REPORT INFORMATION
  Report Type: Spontaneous
  Country: US (occurrence: US)
  Receive Date: 20250623
  Receipt Date: 20250718
  Transmission Date: 20251020
  Serious: Yes (Life-Threatening, Hospitalization)
  Sender: Unknown Manufacturer
  Company Number: US-MELINTA THERAPEUTICS, LLC-US-MLNT-25-00167

PATIENT

DRUGS (4)
  1. KIMYRSA [Suspect]
     Active Substance: ORITAVANCIN DIPHOSPHATE
     Indication: Device related infection
     Route: 041
     Dates: start: 20250617, end: 20250617
  2. KIMYRSA [Suspect]
     Active Substance: ORITAVANCIN DIPHOSPHATE
     Indication: Osteomyelitis
  3. ORBACTIV [Suspect]
     Active Substance: ORITAVANCIN
     Indication: Osteomyelitis
     Route: 041
     Dates: start: 20250606, end: 20250606
  4. ORBACTIV [Suspect]
     Active Substance: ORITAVANCIN
     Indication: Device related infection

REACTIONS (6)
  - Infusion related reaction [Unknown]
  - Oxygen saturation decreased [Unknown]
  - Pyrexia [Unknown]
  - Cough [Unknown]
  - Off label use [Unknown]
  - Multiple use of single-use product [Unknown]

NARRATIVE: CASE EVENT DATE: 20250606
